FAERS Safety Report 20237138 (Version 2)
Quarter: 2021Q4

REPORT INFORMATION
  Report Type: Spontaneous
  Country: US (occurrence: US)
  Receive Date: 20211228
  Receipt Date: 20211231
  Transmission Date: 20220303
  Serious: No
  Sender: FDA-Public Use
  Company Number: US-NOVARTISTESTPH-NVSC2021US296065

PATIENT
  Sex: Female

DRUGS (1)
  1. KESIMPTA [Suspect]
     Active Substance: OFATUMUMAB
     Indication: Product used for unknown indication
     Dosage: 0.4 MG, QMO
     Route: 042
     Dates: start: 20211110

REACTIONS (2)
  - Rhinorrhoea [Not Recovered/Not Resolved]
  - Visual impairment [Not Recovered/Not Resolved]
